FAERS Safety Report 20297161 (Version 1)
Quarter: 2022Q1

REPORT INFORMATION
  Report Type: Spontaneous
  Country: US (occurrence: US)
  Receive Date: 20220105
  Receipt Date: 20220105
  Transmission Date: 20220424
  Serious: Yes (Hospitalization, Other)
  Sender: FDA-Public Use
  Company Number: US-SANOFI-00910389

PATIENT
  Sex: Female

DRUGS (1)
  1. LOVENOX [Suspect]
     Active Substance: ENOXAPARIN SODIUM
     Indication: Thrombosis
     Dosage: 80 MG, BID

REACTIONS (7)
  - Thrombosis [Unknown]
  - Intensive care [Unknown]
  - Cancer in remission [Unknown]
  - Pleural effusion [Unknown]
  - Injection site bruising [Unknown]
  - Injection site scab [Unknown]
  - Skin discolouration [Unknown]
